FAERS Safety Report 9532110 (Version 1)
Quarter: 2013Q1

REPORT INFORMATION
  Report Type: Spontaneous
  Country: US (occurrence: None)
  Receive Date: 20130329
  Receipt Date: 20130329
  Transmission Date: 20140127
  Serious: No
  Sender: FDA-Public Use
  Company Number: 1000042157

PATIENT
  Sex: Female

DRUGS (4)
  1. LINZESS (LINACLOTIDE) (145 MICROGRAM, TABLETS) [Suspect]
     Indication: CONSTIPATION
     Dosage: 145 MG (145 MCG, 1 IN 1 D), ORAL
     Route: 048
     Dates: start: 201301
  2. SPIRONOLACTONE (SPIRONOLACTONE) (SPIRONOLACTONE) [Concomitant]
  3. VYTORIN (INERGY) [Concomitant]
  4. THYROID (NOS)(THYROID) (NOS) (THYROID)( NOS) [Concomitant]

REACTIONS (1)
  - Diarrhoea [None]
